FAERS Safety Report 20689471 (Version 4)
Quarter: 2022Q2

REPORT INFORMATION
  Report Type: Spontaneous
  Country: US (occurrence: US)
  Receive Date: 20220408
  Receipt Date: 20220519
  Transmission Date: 20220720
  Serious: Yes (Other)
  Sender: FDA-Public Use
  Company Number: US-PFIZER INC-202200498724

PATIENT
  Age: 52 Year
  Sex: Female
  Weight: 58.06 kg

DRUGS (2)
  1. ESTRING [Suspect]
     Active Substance: ESTRADIOL
     Indication: Atrophic vulvovaginitis
     Dosage: 2MG, EVERY THREE MONTHS, VAGINALLY
     Route: 067
  2. ESTRING [Suspect]
     Active Substance: ESTRADIOL
     Indication: Vulvovaginal dryness

REACTIONS (6)
  - Neoplasm malignant [Unknown]
  - Contraindicated product administered [Unknown]
  - Product dose omission issue [Unknown]
  - Device issue [Unknown]
  - Drug ineffective [Unknown]
  - Flushing [Unknown]
